FAERS Safety Report 5102261-2 (Version None)
Quarter: 2006Q3

REPORT INFORMATION
  Report Type: 
  Country: None (occurrence: None)
  Receive Date: 20060912
  Receipt Date: 20060904
  Transmission Date: 20061208
  Serious: Yes (Other)
  Sender: FDA-Public Use
  Company Number: JP-BAYER-200613965GDS

PATIENT
  Age: 79 Year
  Sex: Female

DRUGS (1)
  1. TOWARAT L [Suspect]
     Indication: DRUG USE FOR UNKNOWN INDICATION
     Route: 065
     Dates: end: 20050101

REACTIONS (1)
  - LIP AND/OR ORAL CAVITY CANCER [None]
